FAERS Safety Report 4783724-6 (Version None)
Quarter: 2005Q3

REPORT INFORMATION
  Report Type: 
  Country: None (occurrence: None)
  Receive Date: 20050929
  Receipt Date: 20050922
  Transmission Date: 20060218
  Serious: Yes (Hospitalization, Other)
  Sender: FDA-Public Use
  Company Number: US-ABBOTT-05P-163-0311718-00

PATIENT
  Sex: Female
  Weight: 74.91 kg

DRUGS (4)
  1. HUMIRA [Suspect]
     Indication: RHEUMATOID ARTHRITIS
     Route: 058
     Dates: start: 20030101, end: 20040902
  2. HUMIRA [Suspect]
     Route: 058
     Dates: start: 20050101, end: 20050902
  3. PREDNISONE [Concomitant]
     Indication: RHEUMATOID ARTHRITIS
     Route: 048
  4. PROPACET 100 [Concomitant]
     Indication: RHEUMATOID ARTHRITIS

REACTIONS (3)
  - ABSCESS INTESTINAL [None]
  - DIVERTICULITIS [None]
  - WHITE BLOOD CELL COUNT INCREASED [None]
